FAERS Safety Report 8239922-2 (Version None)
Quarter: 2012Q1

REPORT INFORMATION
  Report Type: 
  Country: None (occurrence: None)
  Receive Date: 20120309
  Receipt Date: 20100517
  Transmission Date: 20120608
  Serious: Yes (Hospitalization)
  Sender: FDA-Public Use
  Company Number: PHHY2010US24503

PATIENT
  Age: 44 Year
  Sex: Male

DRUGS (7)
  1. EXTAVIA [Suspect]
     Indication: MULTIPLE SCLEROSIS
     Dosage: 0.25 MG, QOD, SUBCUTANEOUS
     Route: 058
     Dates: start: 20100101
  2. MAGNESIUM (MAGNESIUM) [Concomitant]
  3. BACLOFEN [Concomitant]
  4. ASPIRIN [Concomitant]
  5. CYANOCOBALAMIN [Concomitant]
  6. FEXOFENADINE HYDROCHLORIDE [Concomitant]
  7. HYDROCHLOROTHIAZIDE [Concomitant]

REACTIONS (1)
  - MULTIPLE SCLEROSIS RELAPSE [None]
